FAERS Safety Report 9982062 (Version 2)
Quarter: 2014Q1

REPORT INFORMATION
  Report Type: Report from Study
  Country: US (occurrence: US)
  Receive Date: 20140307
  Receipt Date: 20140307
  Transmission Date: 20141002
  Serious: Yes (Hospitalization)
  Sender: FDA-Public Use
  Company Number: US-ABBVIE-13P-163-1170245-00

PATIENT
  Age: 31 Year
  Sex: Female

DRUGS (6)
  1. HUMIRA [Suspect]
     Indication: COLITIS ULCERATIVE
     Dosage: ONE TIME DOSE
     Route: 058
     Dates: start: 20131017, end: 20131017
  2. HUMIRA [Suspect]
     Dosage: ONE TIME DOSE
     Route: 058
     Dates: start: 20131101, end: 20131101
  3. IMURAN [Concomitant]
     Indication: PRODUCT USED FOR UNKNOWN INDICATION
  4. PHENERGAN [Concomitant]
     Indication: PRODUCT USED FOR UNKNOWN INDICATION
  5. OMEPRAZOLE [Concomitant]
     Indication: PRODUCT USED FOR UNKNOWN INDICATION
  6. BENTYL [Concomitant]
     Indication: PRODUCT USED FOR UNKNOWN INDICATION

REACTIONS (3)
  - Vomiting [Not Recovered/Not Resolved]
  - Pancreatitis [Recovered/Resolved]
  - Colitis ulcerative [Unknown]
